FAERS Safety Report 10378821 (Version 2)
Quarter: 2014Q3

REPORT INFORMATION
  Report Type: Report from Study
  Country: US (occurrence: US)
  Receive Date: 20140812
  Receipt Date: 20140829
  Transmission Date: 20150326
  Serious: Yes (Hospitalization, Other)
  Sender: FDA-Public Use
  Company Number: US-BAXTER-2014BAX046922

PATIENT
  Age: 47 Year
  Sex: Female

DRUGS (1)
  1. GAMMAGARD S/D [Suspect]
     Active Substance: HUMAN IMMUNOGLOBULIN G
     Indication: HYPOGAMMAGLOBULINAEMIA
     Route: 042
     Dates: start: 201112

REACTIONS (6)
  - Impaired gastric emptying [Recovering/Resolving]
  - Cartilage injury [Recovering/Resolving]
  - Small intestinal bacterial overgrowth [Not Recovered/Not Resolved]
  - Tendon rupture [Recovering/Resolving]
  - Pericardial effusion [Unknown]
  - Chest discomfort [Recovering/Resolving]

NARRATIVE: CASE EVENT DATE: 201302
